FAERS Safety Report 6878346-7 (Version None)
Quarter: 2010Q3

REPORT INFORMATION
  Report Type: 
  Country: None (occurrence: None)
  Receive Date: 20100728
  Receipt Date: 20100717
  Transmission Date: 20110219
  Serious: Yes (Hospitalization)
  Sender: FDA-Public Use
  Company Number: US-PFIZER INC-2007086191

PATIENT
  Sex: Male
  Weight: 27.9 kg

DRUGS (5)
  1. SUNITINIB MALATE [Suspect]
     Indication: METASTATIC NEOPLASM
     Dosage: 25 MG, 1X/DAY
     Route: 048
     Dates: start: 20070808, end: 20070820
  2. IRINOTECAN HCL [Suspect]
     Indication: METASTATIC NEOPLASM
     Dosage: 180 MG/M2, 1 EVERY 2 WEEKS
     Route: 042
     Dates: start: 20070807, end: 20070913
  3. LEUCOVORIN CALCIUM [Suspect]
     Indication: METASTATIC NEOPLASM
     Dosage: 400 MG/M2, 1 EVERY 2 WEEKS
     Route: 042
     Dates: start: 20070807, end: 20070913
  4. FLUOROURACIL [Suspect]
     Indication: METASTATIC NEOPLASM
     Dosage: 2400 MG/M2, 1 EVERY 2 WEEKS
     Route: 042
     Dates: start: 20070807, end: 20070809
  5. FLUOROURACIL [Suspect]
     Dosage: 400 MG/M2, 1 EVERY 2 WEEKS
     Route: 040
     Dates: start: 20070807, end: 20070913

REACTIONS (9)
  - BLOOD CALCIUM DECREASED [None]
  - BLOOD OSMOLARITY DECREASED [None]
  - BLOOD SODIUM DECREASED [None]
  - CHOLECYSTITIS ACUTE [None]
  - ENTEROBACTER SEPSIS [None]
  - HAEMATOCRIT DECREASED [None]
  - HAEMOGLOBIN DECREASED [None]
  - PLATELET COUNT DECREASED [None]
  - RED BLOOD CELL COUNT DECREASED [None]
